FAERS Safety Report 9456163 (Version 5)
Quarter: 2014Q3

REPORT INFORMATION
  Report Type: Report from Study
  Country: US (occurrence: US)
  Receive Date: 20130813
  Receipt Date: 20140807
  Transmission Date: 20150326
  Serious: Yes (Hospitalization, Other)
  Sender: FDA-Public Use
  Company Number: US-ROCHE-1260382

PATIENT
  Age: 39 Year
  Sex: Female

DRUGS (21)
  1. LUCENTIS [Suspect]
     Active Substance: RANIBIZUMAB
     Indication: DIABETIC RETINAL OEDEMA
     Dosage: IN BOTH EYES
     Route: 050
  2. METFORMIN [Concomitant]
     Active Substance: METFORMIN HYDROCHLORIDE
     Route: 065
     Dates: start: 20140714
  3. ALLEGRA-D [Concomitant]
     Active Substance: FEXOFENADINE\PSEUDOEPHEDRINE
     Route: 065
     Dates: start: 20140714
  4. AMARYL [Concomitant]
     Active Substance: GLIMEPIRIDE
     Route: 065
  5. METFORMIN [Concomitant]
     Active Substance: METFORMIN HYDROCHLORIDE
     Route: 048
  6. METOPROLOL TARTRATE. [Concomitant]
     Active Substance: METOPROLOL TARTRATE
     Route: 065
     Dates: start: 20140714
  7. AVASTIN [Suspect]
     Active Substance: BEVACIZUMAB
     Indication: VITREOUS HAEMORRHAGE
  8. AMARYL [Concomitant]
     Active Substance: GLIMEPIRIDE
     Route: 065
     Dates: start: 20140714
  9. LANTUS SOLOSTAR [Concomitant]
     Active Substance: INSULIN GLARGINE
     Route: 065
     Dates: start: 20140714
  10. DIOVAN [Concomitant]
     Active Substance: VALSARTAN
     Route: 065
     Dates: start: 20140714
  11. LUCENTIS [Suspect]
     Active Substance: RANIBIZUMAB
     Route: 050
     Dates: start: 20140714
  12. CELEXA (UNITED STATES) [Concomitant]
     Route: 065
     Dates: start: 20140714
  13. AVASTIN [Suspect]
     Active Substance: BEVACIZUMAB
     Indication: DIABETIC RETINAL OEDEMA
  14. DIOVAN [Concomitant]
     Active Substance: VALSARTAN
     Route: 048
  15. DILTIAZEM HCL [Concomitant]
     Active Substance: DILTIAZEM HYDROCHLORIDE
     Route: 065
  16. DILTIAZEM HCL [Concomitant]
     Active Substance: DILTIAZEM HYDROCHLORIDE
     Route: 065
     Dates: start: 20140714
  17. AVASTIN [Suspect]
     Active Substance: BEVACIZUMAB
     Indication: DIABETIC RETINOPATHY
     Dosage: IN BOTH EYES
     Route: 050
     Dates: start: 20130211
  18. AVASTIN [Suspect]
     Active Substance: BEVACIZUMAB
     Indication: RETINAL NEOVASCULARISATION
  19. LANTUS SOLOSTAR [Concomitant]
     Active Substance: INSULIN GLARGINE
     Dosage: 55 UNITS
     Route: 058
  20. CELEXA (UNITED STATES) [Concomitant]
     Route: 065
  21. METOPROLOL TARTRATE. [Concomitant]
     Active Substance: METOPROLOL TARTRATE
     Route: 065

REACTIONS (10)
  - Blood pressure increased [Unknown]
  - Macular oedema [Unknown]
  - Vision blurred [Not Recovered/Not Resolved]
  - Vitreous haemorrhage [Unknown]
  - Retinal haemorrhage [Unknown]
  - Eye haemorrhage [Unknown]
  - Transient ischaemic attack [Unknown]
  - Vitreous floaters [Recovered/Resolved]
  - Photopsia [Recovered/Resolved]
  - Eye pain [Unknown]

NARRATIVE: CASE EVENT DATE: 20130213
